FAERS Safety Report 23690371 (Version 1)
Quarter: 2024Q2

REPORT INFORMATION
  Report Type: Spontaneous
  Country: US (occurrence: US)
  Receive Date: 20240401
  Receipt Date: 20240401
  Transmission Date: 20240716
  Serious: No
  Sender: FDA-Public Use
  Company Number: US-APOTEX-2023AP006208

PATIENT
  Sex: Female

DRUGS (16)
  1. MOMETASONE FUROATE [Suspect]
     Active Substance: MOMETASONE FUROATE
     Indication: Hypersensitivity
     Dosage: 2 DOSAGE FORM, BID (1 SPRAY IN EACH NOSTRIL TWICE A DAY)
     Route: 045
  2. MOMETASONE FUROATE [Suspect]
     Active Substance: MOMETASONE FUROATE
     Indication: Sinus disorder
     Dosage: 4 DOSAGE FORM, BID (2 SPRAYS IN EACH NOSTRIL EVERY MORNING AND AT NIGHT)
     Route: 045
  3. ALLEGRA [Concomitant]
     Active Substance: FEXOFENADINE HYDROCHLORIDE
     Indication: Hypersensitivity
     Dosage: 1 DOSAGE FORM, QD
     Route: 065
  4. ASTELIN [Concomitant]
     Active Substance: AZELASTINE HYDROCHLORIDE
     Indication: Respiration abnormal
     Dosage: 4 DOSAGE FORM, BID
     Route: 045
  5. ASTELIN [Concomitant]
     Active Substance: AZELASTINE HYDROCHLORIDE
     Indication: Lung disorder
  6. BREO ELLIPTA [Concomitant]
     Active Substance: FLUTICASONE FUROATE\VILANTEROL TRIFENATATE
     Indication: Respiration abnormal
     Dosage: 1 DOSAGE FORM, QD
     Route: 065
  7. PLAVIX [Concomitant]
     Active Substance: CLOPIDOGREL BISULFATE
     Indication: Thrombosis prophylaxis
     Dosage: 1 DOSAGE FORM, QD
     Route: 065
  8. SYNTHROID [Concomitant]
     Active Substance: LEVOTHYROXINE SODIUM
     Indication: Thyroid disorder
     Dosage: 1 DOSAGE FORM, Q.AM
     Route: 065
  9. ATIVAN [Concomitant]
     Active Substance: LORAZEPAM
     Indication: Depression
     Dosage: 1 DOSAGE FORM, TID
     Route: 065
  10. EFFEXOR [Concomitant]
     Active Substance: VENLAFAXINE HYDROCHLORIDE
     Indication: Depression
     Dosage: 1 DOSAGE FORM, QD
     Route: 065
  11. CRESTOR [Concomitant]
     Active Substance: ROSUVASTATIN CALCIUM
     Indication: Blood cholesterol abnormal
     Dosage: 1 DOSAGE FORM, QD
     Route: 065
  12. PRILOSEC [Concomitant]
     Active Substance: OMEPRAZOLE MAGNESIUM
     Indication: Epigastric discomfort
     Dosage: 2 DOSAGE FORM, QD
     Route: 065
  13. ROPINIROLE [Concomitant]
     Active Substance: ROPINIROLE
     Indication: Restless legs syndrome
     Dosage: 1 DOSAGE FORM, QD
     Route: 065
  14. ADVIL [Concomitant]
     Active Substance: IBUPROFEN
     Indication: Pain
     Dosage: UNK, PRN, CAPLET
     Route: 065
  15. VITAMINS [Concomitant]
     Active Substance: VITAMINS
     Indication: Supplementation therapy
     Dosage: UNK, QD
     Route: 065
  16. VITAMIN D3 [Concomitant]
     Active Substance: CHOLECALCIFEROL
     Indication: Product used for unknown indication
     Dosage: 2 DOSAGE FORM, QD
     Route: 065

REACTIONS (4)
  - Product packaging quantity issue [Unknown]
  - Product use issue [Unknown]
  - Product dispensing error [Unknown]
  - No adverse event [Unknown]

NARRATIVE: CASE EVENT DATE: 20230227
